FAERS Safety Report 8402530-4 (Version None)
Quarter: 2012Q2

REPORT INFORMATION
  Report Type: 
  Country: None (occurrence: None)
  Receive Date: 20120323
  Receipt Date: 20111214
  Transmission Date: 20120825
  Serious: Yes (Other)
  Sender: FDA-Public Use
  Company Number: 163-21880-10092315

PATIENT
  Age: 62 Year
  Sex: Female

DRUGS (8)
  1. ZOLOFT [Concomitant]
  2. VALIUM [Concomitant]
  3. NEXIUM [Concomitant]
  4. OXYCONTIN [Concomitant]
  5. LASIX [Concomitant]
  6. REVLIMID [Suspect]
     Indication: MULTIPLE MYELOMA
     Dosage: 25 MG, 1 IN 1 D, PO 15 MG, 1 IN 1 D, PO
     Route: 048
     Dates: start: 20100501
  7. REVLIMID [Suspect]
     Indication: MULTIPLE MYELOMA
     Dosage: 25 MG, 1 IN 1 D, PO 15 MG, 1 IN 1 D, PO
     Route: 048
     Dates: start: 20100701
  8. SPIRIVA (TIOTROPIUM) (UNKNOWN) [Concomitant]

REACTIONS (5)
  - FACE OEDEMA [None]
  - PAIN [None]
  - HYPERSENSITIVITY [None]
  - LIP OEDEMA [None]
  - RASH PRURITIC [None]
